FAERS Safety Report 17301272 (Version 1)
Quarter: 2020Q1

REPORT INFORMATION
  Report Type: Spontaneous
  Country: GR (occurrence: GR)
  Receive Date: 20200122
  Receipt Date: 20200122
  Transmission Date: 20200409
  Serious: Yes (Hospitalization)
  Sender: FDA-Public Use
  Company Number: GR-PFIZER INC-2020022084

PATIENT
  Age: 50 Year
  Sex: Male

DRUGS (1)
  1. METHYLPREDNISOLONE. [Suspect]
     Active Substance: METHYLPREDNISOLONE
     Indication: THYROIDITIS SUBACUTE
     Dosage: UNK

REACTIONS (3)
  - Herpes simplex [Unknown]
  - Central nervous system infection [Unknown]
  - Cerebral ischaemia [Unknown]
